FAERS Safety Report 13490449 (Version 1)
Quarter: 2017Q2

REPORT INFORMATION
  Report Type: Spontaneous
  Country: GB (occurrence: GB)
  Receive Date: 20170427
  Receipt Date: 20170427
  Transmission Date: 20170830
  Serious: Yes (Hospitalization)
  Sender: FDA-Public Use
  Company Number: GB-TEVA-761876ACC

PATIENT
  Age: 78 Year
  Sex: Female
  Weight: 90 kg

DRUGS (5)
  1. WARFARIN [Concomitant]
     Active Substance: WARFARIN
  2. BISOPROLOL [Concomitant]
     Active Substance: BISOPROLOL
     Dosage: 2.5 MILLIGRAM DAILY;
  3. LOSARTAN. [Concomitant]
     Active Substance: LOSARTAN
     Dosage: 50 MILLIGRAM DAILY;
  4. LANSOPRAZOLE. [Suspect]
     Active Substance: LANSOPRAZOLE
     Dosage: 15MG ONCE OR TWICE DAILY WHEN SYMPTOMS FLARE.
     Route: 048
  5. COCODAMOL [Concomitant]
     Active Substance: ACETAMINOPHEN\CODEINE PHOSPHATE
     Dosage: 30/500

REACTIONS (7)
  - C-reactive protein increased [Unknown]
  - Abnormal loss of weight [Unknown]
  - Inadequate diet [Unknown]
  - Gallbladder cancer [Unknown]
  - Blood calcium decreased [Unknown]
  - Hypomagnesaemia [Recovering/Resolving]
  - Nausea [Unknown]
